FAERS Safety Report 5909415-3 (Version None)
Quarter: 2008Q4

REPORT INFORMATION
  Report Type: 
  Country: None (occurrence: None)
  Receive Date: 20081006
  Receipt Date: 20080926
  Transmission Date: 20090506
  Serious: Yes (Hospitalization)
  Sender: FDA-Public Use
  Company Number: JP-B.I. PHARMACEUTICALS,INC./RIDGEFIELD-2008-BP-13004NB

PATIENT
  Sex: Female

DRUGS (6)
  1. BI-SIFROL TABLETS [Suspect]
     Indication: CEREBRAL INFARCTION
     Dosage: 1MG
     Route: 048
     Dates: end: 20080821
  2. DOPS [Suspect]
     Indication: CEREBRAL INFARCTION
     Dosage: 300MG
     Route: 048
  3. EC-DOPARL [Suspect]
     Indication: CEREBRAL INFARCTION
     Dosage: 300MG
     Route: 048
  4. DIOVAN [Concomitant]
     Indication: HYPERTENSION
     Dosage: 160MG
     Route: 048
  5. AMLODIPINE [Concomitant]
     Indication: HYPERTENSION
     Dosage: 5MG
     Route: 048
  6. NICHISTATE [Concomitant]
     Indication: THROMBOSIS PROPHYLAXIS
     Dosage: 200MG
     Route: 048

REACTIONS (4)
  - DEHYDRATION [None]
  - SLEEP ATTACKS [None]
  - THORACIC VERTEBRAL FRACTURE [None]
  - URINARY TRACT INFECTION [None]
